FAERS Safety Report 18663561 (Version 1)
Quarter: 2020Q4

REPORT INFORMATION
  Report Type: Spontaneous
  Country: CZ (occurrence: CZ)
  Receive Date: 20201224
  Receipt Date: 20201224
  Transmission Date: 20210114
  Serious: Yes (Hospitalization)
  Sender: FDA-Public Use
  Company Number: CZ-GILEAD-2020-0510487

PATIENT
  Age: 72 Year
  Sex: Female
  Weight: 70 kg

DRUGS (3)
  1. MERONEM [Concomitant]
     Active Substance: MEROPENEM
     Indication: SEPSIS
     Dosage: 1 G EVERY 8 HOURS FOR 7 DAYS
     Route: 042
     Dates: start: 20201204
  2. VEKLURY [Suspect]
     Active Substance: REMDESIVIR
     Indication: COVID-19 PNEUMONIA
     Dosage: INITIAL DOSE 200 MG, THEN 100 MG EVERY 24 HOURS, 6 AMPOULES IN TOTAL
     Route: 042
     Dates: start: 20201201, end: 20201201
  3. VEKLURY [Suspect]
     Active Substance: REMDESIVIR
     Dosage: INITIAL DOSE 200 MG, THEN 100 MG EVERY 24 HOURS, 6 AMPOULES IN TOTAL
     Route: 042
     Dates: start: 20201202, end: 20201205

REACTIONS (2)
  - Liver disorder [Unknown]
  - Hypertransaminasaemia [Unknown]

NARRATIVE: CASE EVENT DATE: 202012
